FAERS Safety Report 5861620-0 (Version None)
Quarter: 2008Q3

REPORT INFORMATION
  Report Type: 
  Country: None (occurrence: None)
  Receive Date: 20080827
  Receipt Date: 20080604
  Transmission Date: 20090109
  Serious: No
  Sender: FDA-Public Use
  Company Number: US-ABBOTT-08P-163-0454949-00

PATIENT
  Sex: Male
  Weight: 81.72 kg

DRUGS (6)
  1. COATED PDS [Suspect]
     Indication: APOLIPOPROTEIN A-I INCREASED
     Route: 048
     Dates: start: 20080515
  2. COATED PDS [Suspect]
     Route: 048
  3. LATANOPROST [Concomitant]
     Indication: GLAUCOMA
     Route: 047
  4. COSOPT [Concomitant]
     Indication: GLAUCOMA
     Route: 047
  5. SIMVASTATIN [Concomitant]
     Indication: BLOOD CHOLESTEROL INCREASED
     Route: 048
  6. MORNIFLUMATE [Concomitant]
     Indication: BENIGN PROSTATIC HYPERPLASIA
     Route: 048

REACTIONS (2)
  - DIZZINESS [None]
  - MALAISE [None]
